FAERS Safety Report 5531589-7 (Version None)
Quarter: 2007Q4

REPORT INFORMATION
  Report Type: 
  Country: None (occurrence: None)
  Receive Date: 20071203
  Receipt Date: 20071126
  Transmission Date: 20080405
  Serious: Yes (Other)
  Sender: FDA-Public Use
  Company Number: US-BAYER-200713838BCC

PATIENT
  Age: 80 Year
  Sex: Female
  Weight: 52 kg

DRUGS (11)
  1. PHILLIPS MILK OF MAGNESIA CLASSIC MINT [Suspect]
     Indication: CONSTIPATION
     Route: 048
  2. ACIPHEX [Concomitant]
  3. SENNAGEN [Concomitant]
  4. ATINOL [Concomitant]
  5. LOTENCIN [Concomitant]
  6. HYDRO CHLORIDE [Concomitant]
  7. LOVASTATIN [Concomitant]
  8. TRICOR [Concomitant]
  9. PREMARIN [Concomitant]
  10. DIGITEK [Concomitant]
  11. ECOTRIN [Concomitant]

REACTIONS (1)
  - HAEMATOCHEZIA [None]
